FAERS Safety Report 7300717-5 (Version None)
Quarter: 2011Q1

REPORT INFORMATION
  Report Type: 
  Country: None (occurrence: None)
  Receive Date: 20110103
  Receipt Date: 20101022
  Transmission Date: 20110831
  Serious: Yes (Other)
  Sender: FDA-Public Use
  Company Number: US-005409

PATIENT
  Age: 57 Year
  Sex: Male
  Weight: 58 kg

DRUGS (3)
  1. PROHANCE [Suspect]
     Indication: MYOCARDIAL INFARCTION
     Dosage: 23ML ONCE INTRAVENOUS
     Route: 042
     Dates: start: 20101022, end: 20101022
  2. PROHANCE [Suspect]
     Indication: NUCLEAR MAGNETIC RESONANCE IMAGING
     Dosage: 23ML ONCE INTRAVENOUS
     Route: 042
     Dates: start: 20101022, end: 20101022
  3. PROHANCE [Suspect]

REACTIONS (5)
  - PRESYNCOPE [None]
  - HYPOTENSION [None]
  - HEART RATE DECREASED [None]
  - ASTHENIA [None]
  - DIZZINESS [None]
